FAERS Safety Report 17179292 (Version 1)
Quarter: 2019Q4

REPORT INFORMATION
  Report Type: Spontaneous
  Country: US (occurrence: US)
  Receive Date: 20191219
  Receipt Date: 20191219
  Transmission Date: 20200122
  Serious: Yes (Life-Threatening, Hospitalization)
  Sender: FDA-Public Use
  Company Number: US-BAYER-2019-231381

PATIENT
  Age: 54 Year
  Sex: Male

DRUGS (1)
  1. CALCIUM CARBONATE. [Suspect]
     Active Substance: CALCIUM CARBONATE
     Indication: DYSPEPSIA
     Dosage: 8-10 DF, QD

REACTIONS (3)
  - Hypercalcaemia [Recovering/Resolving]
  - Contraindicated product administered [None]
  - Encephalopathy [None]
